FAERS Safety Report 4730798-4 (Version None)
Quarter: 2005Q3

REPORT INFORMATION
  Report Type: 
  Country: None (occurrence: None)
  Receive Date: 20050801
  Receipt Date: 20040412
  Transmission Date: 20060218
  Serious: Yes (Other)
  Sender: FDA-Public Use
  Company Number: 2004S1001053

PATIENT
  Age: 53 Year
  Sex: Female

DRUGS (4)
  1. INDOMETHACIN 50MG CAP [Suspect]
     Indication: HEADACHE
     Dosage: 50MG TID, ORAL (ONE DOSE ONLY)
     Route: 048
     Dates: start: 20040331
  2. SUMATRIPTAN SUCCINATE (PRN) [Concomitant]
  3. LEVOTHYROXINE SODIUM [Concomitant]
  4. CONJUGATED ESTROGEN [Concomitant]

REACTIONS (1)
  - CONVULSION [None]
